FAERS Safety Report 22196482 (Version 4)
Quarter: 2023Q2

REPORT INFORMATION
  Report Type: Spontaneous
  Country: GB (occurrence: GB)
  Receive Date: 20230411
  Receipt Date: 20230622
  Transmission Date: 20230721
  Serious: Yes (Disabling, Other)
  Sender: FDA-Public Use
  Company Number: None

PATIENT

DRUGS (53)
  1. CETIRIZINE HYDROCHLORIDE [Suspect]
     Active Substance: CETIRIZINE HYDROCHLORIDE
     Indication: Product used for unknown indication
     Dosage: 10 MG, QD
     Route: 048
  2. ESOMEPRAZOLE [Suspect]
     Active Substance: ESOMEPRAZOLE
     Indication: Reflux laryngitis
     Dosage: AFTER EVERY MEAL
     Route: 065
  3. OMEPRAZOLE [Suspect]
     Active Substance: OMEPRAZOLE
     Indication: Dyspepsia
     Dosage: 40 MILLIGRAM, EVERY 8 HRS
     Route: 065
     Dates: start: 20221123
  4. OMEPRAZOLE [Suspect]
     Active Substance: OMEPRAZOLE
     Dosage: 40 MILLIGRAM, EVERY 8 HRS
     Route: 065
     Dates: start: 20221123
  5. ALGINIC ACID\ALUMINUM HYDROXIDE\MAGNESIUM TRISILICATE\SODIUM BICARBONA [Concomitant]
     Active Substance: ALGINIC ACID\ALUMINUM HYDROXIDE\MAGNESIUM TRISILICATE\SODIUM BICARBONATE
     Indication: Product used for unknown indication
     Dosage: AFTER EVERY MEAL
     Route: 065
  6. LEVOTHYROXINE [Concomitant]
     Active Substance: LEVOTHYROXINE
     Indication: Ill-defined disorder
     Dosage: 1 DOSAGE FORM, 1/DAY
     Dates: start: 20210628
  7. IMDUR [Suspect]
     Active Substance: ISOSORBIDE MONONITRATE
     Indication: Product used for unknown indication
     Dosage: 50 MG, QD
     Route: 048
  8. IMDUR [Suspect]
     Active Substance: ISOSORBIDE MONONITRATE
     Dosage: 50 MG, QD
     Route: 048
  9. BISOPROLOL [Concomitant]
     Active Substance: BISOPROLOL
     Dosage: UNK, QD
     Route: 065
     Dates: start: 20230301
  10. BISOPROLOL FUMARATE [Suspect]
     Active Substance: BISOPROLOL FUMARATE
     Indication: Cerebrovascular accident prophylaxis
     Dosage: 10 MG, QD
  11. LINAGLIPTIN [Suspect]
     Active Substance: LINAGLIPTIN
     Indication: Product used for unknown indication
     Dosage: 5 MG, QD
  12. LINAGLIPTIN [Suspect]
     Active Substance: LINAGLIPTIN
     Dosage: 5 MG, QD
     Route: 065
  13. ISOSORBIDE DINITRATE [Suspect]
     Active Substance: ISOSORBIDE DINITRATE
     Dosage: 50 MG, QD
  14. LOSARTAN [Concomitant]
     Active Substance: LOSARTAN
     Indication: Ill-defined disorder
     Dosage: UNK UNK, QD
     Route: 065
     Dates: start: 20210628
  15. LANSOPRAZOLE [Suspect]
     Active Substance: LANSOPRAZOLE
     Indication: Atrial fibrillation
     Dosage: UNK
     Dates: start: 20210628
  16. LANSOPRAZOLE [Suspect]
     Active Substance: LANSOPRAZOLE
     Dosage: 30 MG, QD
  17. LANSOPRAZOLE [Suspect]
     Active Substance: LANSOPRAZOLE
     Dosage: 30 MG, QD
     Route: 048
  18. CANDESARTAN CILEXETIL [Suspect]
     Active Substance: CANDESARTAN CILEXETIL
     Dosage: 1 DF, QD
     Dates: start: 20220222
  19. APIXABAN [Suspect]
     Active Substance: APIXABAN
     Indication: Cerebrovascular accident prophylaxis
     Dosage: 10 MG, QD
     Route: 065
     Dates: start: 20180207, end: 20180207
  20. DIGOXIN [Suspect]
     Active Substance: DIGOXIN
     Indication: Cerebrovascular accident prophylaxis
     Dosage: 63 UG, QD
  21. DIGOXIN [Suspect]
     Active Substance: DIGOXIN
     Dosage: 63 UG, QD
     Route: 065
  22. BENDROFLUMETHIAZIDE [Concomitant]
     Active Substance: BENDROFLUMETHIAZIDE
     Dosage: UNK, QD
     Route: 065
     Dates: start: 20221123
  23. ESTRIOL [Concomitant]
     Active Substance: ESTRIOL
     Dosage: UNK, QD
     Route: 065
     Dates: start: 20221123
  24. ASTRAZENECA COVID-19 VACCINE [Suspect]
     Active Substance: AZD-1222
     Indication: COVID-19 immunisation
     Dosage: UNK
     Route: 030
     Dates: start: 20210507, end: 20210507
  25. ASTRAZENECA COVID-19 VACCINE [Suspect]
     Active Substance: AZD-1222
     Dosage: UNK
     Route: 030
     Dates: start: 20221214
  26. ASTRAZENECA COVID-19 VACCINE [Suspect]
     Active Substance: AZD-1222
     Dosage: UNK
     Dates: start: 20210605
  27. ASTRAZENECA COVID-19 VACCINE [Suspect]
     Active Substance: AZD-1222
     Dosage: UNK
     Dates: start: 20210208, end: 20210208
  28. ASTRAZENECA COVID-19 VACCINE [Suspect]
     Active Substance: AZD-1222
     Dosage: UNK
     Dates: start: 20210703, end: 20210703
  29. ASTRAZENECA COVID-19 VACCINE [Suspect]
     Active Substance: AZD-1222
     Dosage: UNK
  30. ASTRAZENECA COVID-19 VACCINE [Suspect]
     Active Substance: AZD-1222
     Dosage: UNK
     Dates: start: 20210517
  31. ASTRAZENECA COVID-19 VACCINE [Suspect]
     Active Substance: AZD-1222
     Dosage: UNK
     Dates: start: 20210625
  32. ASTRAZENECA COVID-19 VACCINE [Suspect]
     Active Substance: AZD-1222
     Dosage: UNK
     Dates: start: 20211221, end: 20211221
  33. ASTRAZENECA COVID-19 VACCINE [Suspect]
     Active Substance: AZD-1222
     Dosage: UNK
     Dates: start: 20210622, end: 20210622
  34. ASTRAZENECA COVID-19 VACCINE [Suspect]
     Active Substance: AZD-1222
     Dosage: UNK
     Dates: start: 20210312, end: 20210312
  35. ASTRAZENECA COVID-19 VACCINE [Suspect]
     Active Substance: AZD-1222
     Dosage: UNK
  36. ASTRAZENECA COVID-19 VACCINE [Suspect]
     Active Substance: AZD-1222
     Dosage: UNK
     Dates: start: 20211021, end: 20211021
  37. ASTRAZENECA COVID-19 VACCINE [Suspect]
     Active Substance: AZD-1222
     Dosage: UNK
     Dates: start: 20210312
  38. DAPAGLIFLOZIN [Suspect]
     Active Substance: DAPAGLIFLOZIN
     Indication: Ill-defined disorder
     Dosage: 10 MG, QD
     Route: 048
     Dates: start: 20230217
  39. HYDROCHLOROTHIAZIDE [Suspect]
     Active Substance: HYDROCHLOROTHIAZIDE
     Indication: Product used for unknown indication
  40. HYDROCHLOROTHIAZIDE [Suspect]
     Active Substance: HYDROCHLOROTHIAZIDE
     Dosage: 2 MG
     Route: 048
  41. AMITRIPTYLINE HYDROCHLORIDE [Concomitant]
     Active Substance: AMITRIPTYLINE HYDROCHLORIDE
     Dosage: UNK, QD
     Route: 065
     Dates: start: 20221123
  42. ISOSORBIDE MONONITRATE [Suspect]
     Active Substance: ISOSORBIDE MONONITRATE
     Indication: Product used for unknown indication
     Dosage: 50 MILLIGRAM
  43. ISOSORBIDE MONONITRATE [Suspect]
     Active Substance: ISOSORBIDE MONONITRATE
     Dosage: 50 MILLIGRAM
     Route: 048
  44. LEVOTHYROXINE SODIUM [Suspect]
     Active Substance: LEVOTHYROXINE SODIUM
     Dosage: 12 UG, QD
  45. LEVOTHYROXINE SODIUM [Suspect]
     Active Substance: LEVOTHYROXINE SODIUM
     Dosage: UNK
     Route: 065
     Dates: start: 20210628
  46. LEVOTHYROXINE SODIUM [Suspect]
     Active Substance: LEVOTHYROXINE SODIUM
     Dosage: 12 UG, QD
  47. FOSFOMYCIN [Concomitant]
     Active Substance: FOSFOMYCIN
     Dosage: UNK, QD
     Route: 065
     Dates: start: 20230227, end: 20230228
  48. FELODIPINE [Suspect]
     Active Substance: FELODIPINE
     Indication: Blood pressure abnormal
  49. FELODIPINE [Suspect]
     Active Substance: FELODIPINE
     Dosage: UNK
     Route: 065
  50. SIMVASTATIN [Suspect]
     Active Substance: SIMVASTATIN
     Dosage: UNK
     Dates: start: 20221123
  51. SIMVASTATIN [Suspect]
     Active Substance: SIMVASTATIN
     Dosage: 40 MG, QD
  52. OMEPRAZOLE [Concomitant]
     Active Substance: OMEPRAZOLE
     Dosage: UNK, BID;
     Dates: start: 20221123
  53. NAPROXEN [Suspect]
     Active Substance: NAPROXEN
     Indication: Product used for unknown indication
     Dosage: UNK
     Route: 065

REACTIONS (63)
  - Anxiety [Not Recovered/Not Resolved]
  - Fatigue [Not Recovered/Not Resolved]
  - Feeling abnormal [Unknown]
  - Heart rate increased [Unknown]
  - Muscle twitching [Unknown]
  - Abdominal pain upper [Unknown]
  - Dehydration [Unknown]
  - Muscular weakness [Not Recovered/Not Resolved]
  - Hyperhidrosis [Unknown]
  - Insomnia [Not Recovered/Not Resolved]
  - Myocardial infarction [Recovered/Resolved with Sequelae]
  - Dry skin [Recovered/Resolved]
  - Rash papular [Recovering/Resolving]
  - Cognitive disorder [Recovered/Resolved]
  - Peripheral swelling [Recovered/Resolved]
  - Palpitations [Recovered/Resolved]
  - Blood glucose increased [Recovered/Resolved]
  - Transient ischaemic attack [Recovered/Resolved]
  - Sleep terror [Recovered/Resolved]
  - Tinnitus [Recovered/Resolved]
  - Poor quality sleep [Not Recovered/Not Resolved]
  - Dyspnoea [Recovered/Resolved]
  - Pain of skin [Recovered/Resolved]
  - Pyrexia [Recovered/Resolved]
  - Palmoplantar keratoderma [Recovered/Resolved]
  - Migraine [Recovered/Resolved]
  - Ventricular tachycardia [Recovered/Resolved]
  - Tension headache [Recovered/Resolved]
  - Carotid artery occlusion [Recovered/Resolved with Sequelae]
  - Immunisation [Recovered/Resolved]
  - Pruritus [Recovered/Resolved]
  - Chest pain [Recovered/Resolved]
  - Pericarditis [Recovered/Resolved]
  - Back pain [Recovered/Resolved]
  - Diplopia [Recovered/Resolved]
  - Eye pruritus [Recovered/Resolved]
  - Headache [Recovered/Resolved]
  - Disturbance in attention [Recovered/Resolved]
  - Dizziness [Recovered/Resolved]
  - Memory impairment [Recovered/Resolved]
  - COVID-19 [Recovered/Resolved with Sequelae]
  - Anosmia [Recovered/Resolved]
  - Lip swelling [Recovered/Resolved]
  - Arthralgia [Recovered/Resolved]
  - Alopecia [Recovered/Resolved with Sequelae]
  - Atrial tachycardia [Recovered/Resolved]
  - Angioedema [Recovered/Resolved]
  - Hallucination [Recovered/Resolved]
  - Vasculitis [Recovered/Resolved]
  - Abdominal discomfort [Recovered/Resolved]
  - Facial pain [Recovered/Resolved]
  - Nausea [Recovered/Resolved]
  - Blindness [Recovered/Resolved]
  - Subarachnoid haemorrhage [Recovered/Resolved]
  - Malaise [Recovered/Resolved]
  - Visual impairment [Recovered/Resolved]
  - Tachycardia [Recovered/Resolved]
  - Diarrhoea [Recovered/Resolved]
  - Amnesia [Recovered/Resolved]
  - Pruritus genital [Recovered/Resolved]
  - Pain [Recovered/Resolved]
  - Cardiospasm [Recovered/Resolved]
  - Vomiting [Recovered/Resolved]

NARRATIVE: CASE EVENT DATE: 20221230
